FAERS Safety Report 4716662-5 (Version None)
Quarter: 2005Q3

REPORT INFORMATION
  Report Type: 
  Country: None (occurrence: None)
  Receive Date: 20050714
  Receipt Date: 20050705
  Transmission Date: 20060218
  Serious: Yes (Hospitalization)
  Sender: FDA-Public Use
  Company Number: HQWYE975406JUL05

PATIENT
  Age: 78 Year
  Sex: Male

DRUGS (6)
  1. CORDARONE [Suspect]
     Indication: CARDIAC FIBRILLATION
     Dosage: INTRAVENOUS
     Route: 042
     Dates: start: 20050419, end: 20050420
  2. CLARITHROMYCIN [Suspect]
     Dosage: TOTAL DOSE 3 UNITS/SPECIFIC DAILY DOSE AND FREQUENCY NOT PROVIDED
     Dates: start: 20050419, end: 20050401
  3. ROCEPHIN [Concomitant]
  4. ASACOL [Concomitant]
  5. PANTOPRAZOLE SODIUM [Concomitant]
  6. FOLVITE (FOLIC ACID) [Concomitant]

REACTIONS (2)
  - DRUG INTERACTION [None]
  - TORSADE DE POINTES [None]
